FAERS Safety Report 6554832-4 (Version None)
Quarter: 2010Q1

REPORT INFORMATION
  Report Type: 
  Country: None (occurrence: None)
  Receive Date: 20100127
  Receipt Date: 20100118
  Transmission Date: 20100710
  Serious: Yes (Hospitalization, Other)
  Sender: FDA-Public Use
  Company Number: CA-AMGEN-QUU386387

PATIENT
  Sex: Female
  Weight: 77 kg

DRUGS (2)
  1. NEUPOGEN [Suspect]
     Indication: CHEMOTHERAPY
     Route: 058
     Dates: start: 20100115, end: 20100115
  2. UNSPECIFIED ANTINEOPLASTIC AGENT [Concomitant]

REACTIONS (11)
  - ABDOMINAL PAIN [None]
  - BRADYCARDIA [None]
  - COUGH [None]
  - FLUSHING [None]
  - HAEMATOCRIT DECREASED [None]
  - HAEMOGLOBIN DECREASED [None]
  - HYPERSENSITIVITY [None]
  - HYPOTENSION [None]
  - NAUSEA [None]
  - PLATELET COUNT DECREASED [None]
  - SYNCOPE [None]
